FAERS Safety Report 9356387 (Version 1)
Quarter: 2013Q2

REPORT INFORMATION
  Report Type: Spontaneous
  Country: US (occurrence: None)
  Receive Date: 20130614
  Receipt Date: 20130614
  Transmission Date: 20140414
  Serious: Yes (Hospitalization, Other)
  Sender: FDA-Public Use
  Company Number: AUR-APL-2013-04895

PATIENT
  Age: 62 Year
  Sex: Male
  Weight: 99.77 kg

DRUGS (8)
  1. LISINOPRIL (LISINOPRIL) [Suspect]
     Indication: HYPERTENSION
     Dates: start: 1995
  2. LYRICA [Suspect]
     Indication: RHEUMATOID ARTHRITIS
     Dates: start: 2010, end: 201304
  3. LYRICA [Suspect]
     Indication: GUILLAIN-BARRE SYNDROME
     Dates: start: 2010, end: 201304
  4. MORPHINE [Suspect]
     Indication: NEURALGIA
     Dates: start: 201305, end: 201305
  5. TYLENOL [Suspect]
     Indication: NEURALGIA
     Dates: start: 201305, end: 201305
  6. HYDROCHLOROTHIAZIDE (HYDROCHLOROTHIAZIDE) [Concomitant]
  7. PREDNISONE (PREDNISONE) [Concomitant]
  8. CYCLOBENZAPRINE (CYCLOBENZAPRINE) [Concomitant]

REACTIONS (5)
  - Chronic obstructive pulmonary disease [None]
  - Back pain [None]
  - Hypotension [None]
  - Abdominal discomfort [None]
  - Drug ineffective [None]
